FAERS Safety Report 5499422-X (Version None)
Quarter: 2007Q4

REPORT INFORMATION
  Report Type: 
  Country: None (occurrence: None)
  Receive Date: 20071026
  Receipt Date: 20071019
  Transmission Date: 20080405
  Serious: Yes (Other)
  Sender: FDA-Public Use
  Company Number: B0492675A

PATIENT
  Sex: Male

DRUGS (1)
  1. TIMENTIN [Suspect]

REACTIONS (2)
  - ANGINA PECTORIS [None]
  - DYSPHAGIA [None]
